FAERS Safety Report 9888022 (Version 1)
Quarter: 2014Q1

REPORT INFORMATION
  Report Type: Spontaneous
  Country: US (occurrence: None)
  Receive Date: 20140207
  Receipt Date: 20140207
  Transmission Date: 20141002
  Serious: Yes (Other)
  Sender: FDA-Public Use
  Company Number: 2014P1000823

PATIENT
  Sex: 0

DRUGS (1)
  1. PHENOBARBITAL [Suspect]

REACTIONS (3)
  - Exposure during pregnancy [None]
  - Hypotonia [None]
  - Growth retardation [None]
